FAERS Safety Report 4431434-7 (Version None)
Quarter: 2004Q3

REPORT INFORMATION
  Report Type: 
  Country: None (occurrence: None)
  Receive Date: 20040824
  Receipt Date: 20040726
  Transmission Date: 20050211
  Serious: Yes (Other)
  Sender: FDA-Public Use
  Company Number: GB-GLAXOSMITHKLINE-B0340635A

PATIENT
  Age: 82 Year
  Sex: Male

DRUGS (4)
  1. ALKERAN [Suspect]
     Indication: MULTIPLE MYELOMA
     Route: 065
     Dates: start: 20031201
  2. SODIUM CLODRONATE [Suspect]
     Indication: MULTIPLE MYELOMA
     Dosage: 800MG TWICE PER DAY
     Route: 048
     Dates: start: 20031201
  3. BENDROFLUAZIDE [Concomitant]
     Indication: HYPERTENSION
     Dosage: 300MG PER DAY
     Route: 048
  4. ALLOPURINOL [Concomitant]
     Route: 048
     Dates: start: 20031201

REACTIONS (2)
  - CORNEAL DEPOSITS [None]
  - EYE REDNESS [None]
